FAERS Safety Report 17860466 (Version 10)
Quarter: 2020Q3

REPORT INFORMATION
  Report Type: Report from Study
  Country: JP (occurrence: JP)
  Receive Date: 20200604
  Receipt Date: 20200716
  Transmission Date: 20201103
  Serious: Yes (Hospitalization)
  Sender: FDA-Public Use
  Company Number: JP-EISAI MEDICAL RESEARCH-EC-2020-075509

PATIENT
  Age: 66 Year
  Sex: Male
  Weight: 67 kg

DRUGS (13)
  1. FEBURIC [Concomitant]
     Active Substance: FEBUXOSTAT
     Dates: start: 20131017
  2. PEMBROLIZUMAB. [Suspect]
     Active Substance: PEMBROLIZUMAB
     Indication: HEPATOCELLULAR CARCINOMA
     Route: 041
     Dates: start: 20200317, end: 20200428
  3. LASIX [Concomitant]
     Active Substance: FUROSEMIDE
     Dates: start: 20091104, end: 20200604
  4. GASTER [Concomitant]
     Active Substance: FAMOTIDINE
     Dosage: WAFER
     Dates: start: 202002
  5. INSULIN GLARGINE [Concomitant]
     Active Substance: INSULIN GLARGINE
     Route: 058
     Dates: start: 20191010
  6. HIRUDOID SOFT [Concomitant]
     Active Substance: GLYCOSAMINOGLYCANS
     Dates: start: 20200317
  7. LENVATINIB [Suspect]
     Active Substance: LENVATINIB
     Dosage: FLUCTUATED DOSES
     Route: 048
     Dates: start: 20200618
  8. SENNOSIDES. [Concomitant]
     Active Substance: SENNOSIDES
     Dates: start: 20140515, end: 20200604
  9. PEMBROLIZUMAB. [Suspect]
     Active Substance: PEMBROLIZUMAB
     Route: 041
     Dates: start: 20200519, end: 20200519
  10. JANUVIA [Concomitant]
     Active Substance: SITAGLIPTIN PHOSPHATE
     Dates: start: 20120823
  11. RESTAMIN [Concomitant]
     Active Substance: DIPHENHYDRAMINE
     Dates: start: 20200317
  12. LENVATINIB [Suspect]
     Active Substance: LENVATINIB
     Indication: HEPATOCELLULAR CARCINOMA
     Dosage: (BODY WEIGHT (BW) MORE THAN OR EQUAL TO 60 KG)
     Route: 048
     Dates: start: 20200317, end: 20200523
  13. VOGLIBOSE [Concomitant]
     Active Substance: VOGLIBOSE
     Dates: start: 202002

REACTIONS (3)
  - Back pain [Recovered/Resolved]
  - Musculoskeletal pain [Recovered/Resolved]
  - Pyrexia [Recovered/Resolved]

NARRATIVE: CASE EVENT DATE: 20200522
